FAERS Safety Report 9082758 (Version 1)
Quarter: 2013Q1

REPORT INFORMATION
  Report Type: Report from Study
  Country: US (occurrence: US)
  Receive Date: 20130130
  Receipt Date: 20130130
  Transmission Date: 20140127
  Serious: No
  Sender: FDA-Public Use
  Company Number: US-ABBOTT-12P-163-0979438-00

PATIENT
  Age: 28 Year
  Sex: Female

DRUGS (8)
  1. HUMIRA [Suspect]
     Indication: PSORIATIC ARTHROPATHY
     Dates: start: 201202
  2. METHOTREXATE [Suspect]
     Indication: PSORIATIC ARTHROPATHY
     Dosage: 25 MG/1ML A WEEK
     Route: 058
  3. METHOTREXATE [Suspect]
     Dosage: 20 MG/0.8ML WEEKLY
     Route: 058
  4. BUSPIRONE HCL [Concomitant]
     Indication: ANXIETY
  5. CLONAZEPAM [Concomitant]
     Indication: ANXIETY
     Dosage: 1 TAB 3 TIMES DAILY AND 2 TABS EVERY HOUR OF SLEEP
  6. PRED FORTE OPHT SUSP [Concomitant]
     Indication: IRITIS
     Dosage: EACH EYE ABOUT HOUR OF SLEEP
  7. HYDROCODONE W/APAP [Concomitant]
     Indication: PAIN
     Dosage: 10/325MG
  8. OXYCODONE HCL [Concomitant]
     Indication: BREAKTHROUGH PAIN
     Dosage: AS NEEDED

REACTIONS (6)
  - Device malfunction [Recovering/Resolving]
  - Incorrect dose administered [Recovering/Resolving]
  - Drug ineffective [Recovering/Resolving]
  - Psoriatic arthropathy [Recovering/Resolving]
  - Pain [Recovering/Resolving]
  - Nausea [Unknown]
